FAERS Safety Report 8602003-X (Version None)
Quarter: 2012Q3

REPORT INFORMATION
  Report Type: 
  Country: None (occurrence: None)
  Receive Date: 20120817
  Receipt Date: 20120809
  Transmission Date: 20120928
  Serious: Yes (Other)
  Sender: FDA-Public Use
  Company Number: DE-PFIZER INC-2012170182

PATIENT
  Sex: Male

DRUGS (2)
  1. TOVIAZ [Suspect]
     Dosage: 4 MG, 1X/DAY
  2. TOVIAZ [Suspect]
     Dosage: 4 MG, 2X/DAY

REACTIONS (10)
  - OROPHARYNGEAL PAIN [None]
  - HYPERSENSITIVITY [None]
  - GASTRIC DISORDER [None]
  - HEADACHE [None]
  - BLADDER DISORDER [None]
  - ABDOMINAL DISTENSION [None]
  - PYREXIA [None]
  - ACCIDENTAL OVERDOSE [None]
  - RASH [None]
  - DERMATITIS BULLOUS [None]
